FAERS Safety Report 7650202-6 (Version None)
Quarter: 2011Q3

REPORT INFORMATION
  Report Type: 
  Country: None (occurrence: None)
  Receive Date: 20110802
  Receipt Date: 20110727
  Transmission Date: 20111222
  Serious: Yes (Disabling, Other)
  Sender: FDA-Public Use
  Company Number: DK-PFIZER INC-2011171771

PATIENT
  Age: 67 Year
  Sex: Female
  Weight: 55 kg

DRUGS (3)
  1. IBUPROFEN [Suspect]
     Indication: OSTEOARTHRITIS
     Dates: start: 20030101, end: 20030101
  2. ACETAMINOPHEN [Concomitant]
     Indication: PAIN
     Route: 048
  3. CELEBREX [Suspect]
     Indication: PAIN
     Route: 048
     Dates: start: 20030101, end: 20030826

REACTIONS (1)
  - COLITIS [None]
